FAERS Safety Report 13286892 (Version 2)
Quarter: 2021Q3

REPORT INFORMATION
  Report Type: Other
  Country: GB (occurrence: GB)
  Receive Date: 20170302
  Receipt Date: 20210708
  Transmission Date: 20211014
  Serious: Yes (Other)
  Sender: FDA-Public Use
  Company Number: GB-ROCHE-1897508

PATIENT

DRUGS (3)
  1. OXALIPLATIN. [Suspect]
     Active Substance: OXALIPLATIN
     Indication: OESOPHAGEAL ADENOCARCINOMA
     Dosage: ON DAY 1 (DURING INDUCTION CHEMOTHERAPY)
     Route: 042
  2. CAPECITABINE. [Suspect]
     Active Substance: CAPECITABINE
     Indication: OESOPHAGEAL ADENOCARCINOMA
     Dosage: FROM DAY 1?21
     Route: 048
  3. OXALIPLATIN. [Suspect]
     Active Substance: OXALIPLATIN
     Dosage: ON DAY 1, 15, 29 (DURING CHEMORADIOTHERAPY)
     Route: 042

REACTIONS (32)
  - Fatigue [Unknown]
  - Metabolic disorder [Unknown]
  - Peripheral ischaemia [Unknown]
  - Bronchiectasis [Unknown]
  - Nausea [Unknown]
  - Dyspnoea [Unknown]
  - Hypertension [Unknown]
  - White blood cell count decreased [Unknown]
  - Oesophagitis [Unknown]
  - Lymphocyte count decreased [Unknown]
  - Dysaesthesia pharynx [Unknown]
  - Pericarditis constrictive [Unknown]
  - Blood alkaline phosphatase increased [Unknown]
  - Haematotoxicity [Unknown]
  - Constipation [Unknown]
  - Dysphagia [Unknown]
  - Platelet count decreased [Unknown]
  - Neuropathy peripheral [Unknown]
  - Anaemia [Unknown]
  - Chest pain [Unknown]
  - Gastrointestinal pain [Unknown]
  - Diarrhoea [Unknown]
  - Mucosal inflammation [Unknown]
  - Vomiting [Unknown]
  - Fall [Unknown]
  - Dyspepsia [Unknown]
  - Decreased appetite [Unknown]
  - Embolism [Unknown]
  - Gastrointestinal toxicity [Unknown]
  - Abdominal pain [Unknown]
  - Dry mouth [Unknown]
  - Neutrophil count decreased [Unknown]
